FAERS Safety Report 8935836 (Version 3)
Quarter: 2013Q2

REPORT INFORMATION
  Report Type: Spontaneous
  Country: US (occurrence: US)
  Receive Date: 20121130
  Receipt Date: 20130402
  Transmission Date: 20140414
  Serious: Yes (Hospitalization, Other)
  Sender: FDA-Public Use
  Company Number: US-BRISTOL-MYERS SQUIBB COMPANY-17144783

PATIENT
  Age: 72 Year
  Sex: Male

DRUGS (3)
  1. YERVOY [Suspect]
     Indication: MALIGNANT MELANOMA STAGE IV
     Dosage: FIRST DOSE?DOSE-200MG
     Route: 042
     Dates: start: 20120919
  2. LOVENOX [Concomitant]
     Dates: start: 201108
  3. LEVOTHYROXINE [Concomitant]
     Dates: start: 20120207

REACTIONS (1)
  - Type 1 diabetes mellitus [Not Recovered/Not Resolved]
